FAERS Safety Report 7302025-5 (Version None)
Quarter: 2011Q1

REPORT INFORMATION
  Report Type: 
  Country: None (occurrence: None)
  Receive Date: 20110208
  Receipt Date: 20110126
  Transmission Date: 20110831
  Serious: Yes (Hospitalization)
  Sender: FDA-Public Use
  Company Number: 2011US0007

PATIENT
  Age: 2 Year
  Sex: Female
  Weight: 10.9 kg

DRUGS (1)
  1. ORFADIN [Suspect]
     Indication: TYROSINAEMIA
     Dosage: 30 MG, 2 IN 1 D
     Dates: start: 20100312, end: 20101119

REACTIONS (1)
  - LIVER TRANSPLANT [None]
